FAERS Safety Report 5010135-0 (Version None)
Quarter: 2006Q2

REPORT INFORMATION
  Report Type: 
  Country: None (occurrence: None)
  Receive Date: 20060404
  Receipt Date: 20051208
  Transmission Date: 20061013
  Serious: No
  Sender: FDA-Public Use
  Company Number: US200512001585

PATIENT
  Age: 52 Year
  Sex: Male

DRUGS (1)
  1. CYMBALTA [Suspect]
     Indication: DEPRESSION
     Dosage: 30 MG, ORAL
     Route: 048
     Dates: start: 20051121

REACTIONS (4)
  - AGITATION [None]
  - ANGER [None]
  - SUICIDAL IDEATION [None]
  - TREMOR [None]
